FAERS Safety Report 9694451 (Version 2)
Quarter: 2014Q1

REPORT INFORMATION
  Report Type: Spontaneous
  Country: US (occurrence: US)
  Receive Date: 20131118
  Receipt Date: 20140102
  Transmission Date: 20141002
  Serious: No
  Sender: FDA-Public Use
  Company Number: US-PFIZER INC-2013328445

PATIENT
  Age: 25 Year
  Sex: Female
  Weight: 54.42 kg

DRUGS (5)
  1. DEPO-PROVERA [Suspect]
     Indication: CONTRACEPTION
     Dosage: UNK
     Dates: start: 2007
  2. DEPO-PROVERA [Suspect]
     Dosage: EVERY THREE MONTHS
     Dates: start: 201307, end: 201307
  3. DEPO-PROVERA [Suspect]
     Dosage: 150 MG, UNK
     Route: 030
     Dates: start: 20130808
  4. DEPO-PROVERA [Suspect]
     Dosage: 150 MG, UNK
     Route: 030
     Dates: start: 20131028
  5. SUBOXONE [Concomitant]
     Dosage: UNK

REACTIONS (1)
  - Metrorrhagia [Recovered/Resolved]
